FAERS Safety Report 4792379-6 (Version None)
Quarter: 2005Q4

REPORT INFORMATION
  Report Type: 
  Country: None (occurrence: None)
  Receive Date: 20051010
  Receipt Date: 20050929
  Transmission Date: 20060501
  Serious: Yes (Hospitalization)
  Sender: FDA-Public Use
  Company Number: GB-JNJFOC-20051001268

PATIENT
  Age: 55 Year
  Sex: Female

DRUGS (6)
  1. REMICADE [Suspect]
     Indication: RHEUMATOID ARTHRITIS
     Route: 042
  2. METHOTREXATE [Concomitant]
     Indication: RHEUMATOID ARTHRITIS
     Route: 048
  3. DOTHIEPIN HYDROCHLORIDE [Concomitant]
     Route: 048
  4. THYROXINE [Concomitant]
     Route: 048
  5. FOLIC ACID [Concomitant]
     Route: 048
  6. ZOTON [Concomitant]
     Indication: GASTROOESOPHAGEAL REFLUX DISEASE
     Route: 048

REACTIONS (1)
  - SUDDEN HEARING LOSS [None]
